FAERS Safety Report 7255652-8 (Version None)
Quarter: 2011Q1

REPORT INFORMATION
  Report Type: 
  Country: None (occurrence: None)
  Receive Date: 20110129
  Receipt Date: 20100823
  Transmission Date: 20110831
  Serious: No
  Sender: FDA-Public Use
  Company Number: US-ABBOTT-10P-163-0666702-00

PATIENT
  Sex: Male

DRUGS (5)
  1. HUMIRA [Suspect]
     Indication: RHEUMATOID ARTHRITIS
     Dates: start: 20040101
  2. SYNTHROID [Concomitant]
  3. DIOVAN [Concomitant]
     Indication: HYPERTENSION
  4. GLYBURIDE [Concomitant]
  5. METFORMIN [Concomitant]

REACTIONS (11)
  - OCULAR HYPERAEMIA [None]
  - OEDEMA PERIPHERAL [None]
  - HEADACHE [None]
  - BLOOD TESTOSTERONE DECREASED [None]
  - PRURITUS [None]
  - MOOD SWINGS [None]
  - PANIC ATTACK [None]
  - DRY EYE [None]
  - WEIGHT INCREASED [None]
  - BACK PAIN [None]
  - HEPATIC ENZYME INCREASED [None]
